FAERS Safety Report 9186043 (Version 1)
Quarter: 2013Q1

REPORT INFORMATION
  Report Type: Spontaneous
  Country: US (occurrence: US)
  Receive Date: 20130325
  Receipt Date: 20130325
  Transmission Date: 20140127
  Serious: No
  Sender: FDA-Public Use
  Company Number: US-009507513-1303USA009641

PATIENT
  Sex: 0

DRUGS (3)
  1. JANUVIA [Suspect]
     Route: 048
  2. HUMULIN 70/30 [Concomitant]
     Dosage: 70/30
  3. METFORMIN [Concomitant]

REACTIONS (1)
  - Blood glucose increased [Unknown]
